FAERS Safety Report 5623577-7 (Version None)
Quarter: 2008Q1

REPORT INFORMATION
  Report Type: 
  Country: None (occurrence: None)
  Receive Date: 20080212
  Receipt Date: 20080204
  Transmission Date: 20080703
  Serious: Yes (Death, Life-Threatening, Hospitalization, Other)
  Sender: FDA-Public Use
  Company Number: US-ELI_LILLY_AND_COMPANY-US200802000657

PATIENT
  Sex: Female

DRUGS (1)
  1. HUMULIN 70/30 [Suspect]
     Indication: DIABETES MELLITUS

REACTIONS (14)
  - BLOOD GLUCOSE DECREASED [None]
  - BLOOD GLUCOSE INCREASED [None]
  - CONTUSION [None]
  - FEELING HOT [None]
  - GAIT DISTURBANCE [None]
  - HOSPITALISATION [None]
  - NAUSEA [None]
  - PAIN IN EXTREMITY [None]
  - PANCREATIC CARCINOMA [None]
  - PULSE ABSENT [None]
  - RESUSCITATION [None]
  - SPEECH DISORDER [None]
  - THROMBOSIS [None]
  - VASCULAR RUPTURE [None]
